FAERS Safety Report 4516828-3 (Version None)
Quarter: 2004Q4

REPORT INFORMATION
  Report Type: 
  Country: None (occurrence: None)
  Receive Date: 20041202
  Receipt Date: 20030515
  Transmission Date: 20050328
  Serious: Yes (Hospitalization)
  Sender: FDA-Public Use
  Company Number: FR-GLAXOSMITHKLINE-B0299672A

PATIENT
  Age: 73 Year
  Sex: Female
  Weight: 72 kg

DRUGS (15)
  1. AVANDIA [Suspect]
     Indication: DIABETES MELLITUS NON-INSULIN-DEPENDENT
     Dosage: 4MG PER DAY
     Route: 048
     Dates: start: 20030214
  2. DIAMICRON [Suspect]
     Indication: DIABETES MELLITUS NON-INSULIN-DEPENDENT
     Dosage: 90MG PER DAY
     Route: 048
     Dates: start: 20020101
  3. SOPROL [Suspect]
     Dosage: .5UNIT PER DAY
     Route: 048
     Dates: start: 19900101
  4. TAHOR [Concomitant]
     Dosage: 10MG PER DAY
     Route: 048
     Dates: start: 19900101
  5. ASPEGIC 325 [Concomitant]
     Dosage: 250MG PER DAY
     Route: 048
     Dates: start: 19900101
  6. ZESTRIL [Concomitant]
     Dosage: 20MG PER DAY
     Route: 048
     Dates: start: 19900101
  7. ZYLORIC [Concomitant]
     Indication: HYPERURICAEMIA
     Dosage: 200MG PER DAY
     Route: 048
     Dates: start: 19900101
  8. OROCAL D3 [Concomitant]
     Dosage: 1UNIT PER DAY
  9. DEBRIDAT [Concomitant]
     Dosage: 1UNIT THREE TIMES PER DAY
     Route: 048
  10. TIORFAN [Concomitant]
     Dosage: 1UNIT THREE TIMES PER DAY
  11. SPASFON LYOC [Concomitant]
     Dosage: 1UNIT FOUR TIMES PER DAY
  12. VASTAREL [Concomitant]
     Dosage: 20MG THREE TIMES PER DAY
     Route: 048
  13. LEXOMIL [Concomitant]
     Dosage: 3MG PER DAY
     Route: 048
  14. NITROGLYCERIN [Concomitant]
  15. SERC [Concomitant]
     Dosage: 1UNIT PER DAY

REACTIONS (4)
  - CAROTID ARTERY STENOSIS [None]
  - FALL [None]
  - HYPERCHOLESTEROLAEMIA [None]
  - HYPERTRIGLYCERIDAEMIA [None]
